FAERS Safety Report 18097770 (Version 2)
Quarter: 2020Q3

REPORT INFORMATION
  Report Type: Spontaneous
  Country: CA (occurrence: CA)
  Receive Date: 20200731
  Receipt Date: 20200917
  Transmission Date: 20201103
  Serious: Yes (Other)
  Sender: FDA-Public Use
  Company Number: CA-009507513-2007CAN009396

PATIENT
  Age: 41 Year
  Sex: Male

DRUGS (7)
  1. SORAFENIB [Suspect]
     Active Substance: SORAFENIB
     Indication: NEOPLASM MALIGNANT
     Dosage: UNK
     Route: 065
  2. TEMODAL [Suspect]
     Active Substance: TEMOZOLOMIDE
     Indication: NEOPLASM MALIGNANT
     Dosage: UNK
     Route: 065
  3. CAPECITABINE. [Suspect]
     Active Substance: CAPECITABINE
     Indication: NEOPLASM MALIGNANT
     Dosage: UNK
     Route: 065
  4. DENOSUMAB [Suspect]
     Active Substance: DENOSUMAB
     Indication: NEOPLASM MALIGNANT
     Dosage: FORMULATION: SOLUTION SUBCUTANEOUS
     Route: 065
  5. ZOLEDRONIC ACID [Suspect]
     Active Substance: ZOLEDRONIC ACID
     Indication: NEOPLASM MALIGNANT
     Dosage: UNK
     Route: 065
  6. CISPLATIN. [Suspect]
     Active Substance: CISPLATIN
     Indication: LUNG NEOPLASM MALIGNANT
     Dosage: UNK
     Route: 065
  7. ETOPOSIDE. [Suspect]
     Active Substance: ETOPOSIDE
     Indication: NEOPLASM MALIGNANT
     Dosage: UNK
     Route: 065

REACTIONS (8)
  - Metastases to lung [Unknown]
  - Neoplasm malignant [Unknown]
  - Malignant neoplasm progression [Unknown]
  - Metastases to peritoneum [Unknown]
  - Metastasis [Unknown]
  - Product use in unapproved indication [Unknown]
  - Metastases to liver [Unknown]
  - Metastases to lymph nodes [Unknown]
